FAERS Safety Report 7849633-0 (Version None)
Quarter: 2012Q1

REPORT INFORMATION
  Report Type: 
  Country: None (occurrence: None)
  Receive Date: 20111024
  Receipt Date: 20111010
  Transmission Date: 20120608
  Serious: Yes (Hospitalization, Other)
  Sender: FDA-Public Use
  Company Number: DSJ-2011-22126

PATIENT
  Age: 4 Decade
  Sex: Female

DRUGS (5)
  1. AMLODIPINE BESYLATE AND OLMESARTAN MEDOXOMIL [Suspect]
     Indication: HYPERTENSION
     Dosage: 6.67/1.67 MG (1 IN 3 D),PER ORAL ,10/2.5 MG (1 IN 2 D),PER ORAL, 40/5 MG (1 IN 1 D),PER ORAL
     Route: 048
     Dates: start: 20110201
  2. AMLODIPINE BESYLATE AND OLMESARTAN MEDOXOMIL [Suspect]
     Indication: HYPERTENSION
     Dosage: 6.67/1.67 MG (1 IN 3 D),PER ORAL ,10/2.5 MG (1 IN 2 D),PER ORAL, 40/5 MG (1 IN 1 D),PER ORAL
     Route: 048
     Dates: start: 20090701, end: 20110201
  3. AMLODIPINE BESYLATE AND OLMESARTAN MEDOXOMIL [Suspect]
     Indication: HYPERTENSION
     Dosage: 6.67/1.67 MG (1 IN 3 D),PER ORAL ,10/2.5 MG (1 IN 2 D),PER ORAL, 40/5 MG (1 IN 1 D),PER ORAL
     Route: 048
     Dates: start: 20090101, end: 20090701
  4. ANESTHESIA [Suspect]
     Indication: PREOPERATIVE CARE
     Dates: start: 20090101, end: 20090101
  5. LEVOTHYROXINE SODIUM [Concomitant]

REACTIONS (7)
  - HYPOTENSION [None]
  - CARDIO-RESPIRATORY ARREST [None]
  - DRY MOUTH [None]
  - DIZZINESS [None]
  - BLOOD PRESSURE SYSTOLIC INCREASED [None]
  - COMA [None]
  - DRUG INEFFECTIVE [None]
